FAERS Safety Report 19494724 (Version 7)
Quarter: 2022Q2

REPORT INFORMATION
  Report Type: Report from Study
  Country: FR (occurrence: FR)
  Receive Date: 20210705
  Receipt Date: 20220427
  Transmission Date: 20220721
  Serious: Yes (Hospitalization)
  Sender: FDA-Public Use
  Company Number: NVSC2021FR149317

PATIENT
  Age: 56 Year
  Sex: Male
  Weight: 73 kg

DRUGS (28)
  1. CYTARABINE [Suspect]
     Active Substance: CYTARABINE
     Indication: Philadelphia chromosome positive
     Dosage: 5370 MG, 1 JOUR/DAY D2 TO D3
     Route: 042
     Dates: start: 20210612, end: 20210613
  2. CYTARABINE [Suspect]
     Active Substance: CYTARABINE
     Dosage: 40 MG, 1 JOUR/DAY D9
     Route: 037
     Dates: start: 20210619, end: 20210619
  3. DEXAMETHASONE [Suspect]
     Active Substance: DEXAMETHASONE
     Indication: Philadelphia chromosome positive
     Dosage: 40 MG
     Route: 048
     Dates: start: 20210319, end: 20210604
  4. NILOTINIB [Suspect]
     Active Substance: NILOTINIB
     Indication: Philadelphia chromosome positive
     Dosage: 800 MG
     Route: 048
     Dates: start: 20210319
  5. NILOTINIB [Suspect]
     Active Substance: NILOTINIB
     Dosage: UNK
     Route: 048
     Dates: start: 20210514
  6. NILOTINIB [Suspect]
     Active Substance: NILOTINIB
     Dosage: 800 MG, 1 J/DAY 1 TO D 8
     Route: 048
     Dates: start: 20210611
  7. METHOTREXATE [Suspect]
     Active Substance: METHOTREXATE
     Indication: Product used for unknown indication
     Dosage: 15 MG
     Route: 042
     Dates: start: 20210319
  8. METHOTREXATE [Suspect]
     Active Substance: METHOTREXATE
     Dosage: 1790 MG, 1790 MG, 1 JOUR/DAY D1
     Route: 042
     Dates: start: 20210611, end: 20210611
  9. METHOTREXATE [Suspect]
     Active Substance: METHOTREXATE
     Dosage: 15 MG, 1 JOUR/DAY D9
     Route: 037
     Dates: start: 20210619, end: 20210619
  10. PEGFILGRASTIM [Concomitant]
     Active Substance: PEGFILGRASTIM
     Indication: Product used for unknown indication
     Dosage: 48 HUI/JOUR, D6 TO D10
     Route: 042
     Dates: start: 20210618, end: 20210622
  11. VINCRISTINE [Concomitant]
     Active Substance: VINCRISTINE
     Indication: Product used for unknown indication
     Dosage: 2 MG
     Route: 042
     Dates: start: 20210319, end: 20210604
  12. CYTARABINE [Concomitant]
     Active Substance: CYTARABINE
     Indication: Product used for unknown indication
     Dosage: 40 MG
     Route: 065
     Dates: start: 20210319
  13. DEPO-MEDROL [Concomitant]
     Active Substance: METHYLPREDNISOLONE ACETATE
     Indication: Product used for unknown indication
     Dosage: 40 MG
     Route: 065
     Dates: start: 20210319
  14. SERTRALINE [Concomitant]
     Active Substance: SERTRALINE HYDROCHLORIDE
     Indication: Product used for unknown indication
     Dosage: 100 MG
     Route: 048
  15. METHYLPREDNISOLONE ACETATE [Concomitant]
     Active Substance: METHYLPREDNISOLONE ACETATE
     Indication: Product used for unknown indication
     Dosage: 40 MG, 1 J/DAY 9
     Route: 037
     Dates: start: 20210619, end: 20210619
  16. ONDANSETRON [Concomitant]
     Active Substance: ONDANSETRON
     Indication: Product used for unknown indication
     Dosage: 16 MG, 1 JOUR/DAY, D1 TO D3
     Route: 042
     Dates: start: 20210611, end: 20210613
  17. ZOPICLONE [Concomitant]
     Active Substance: ZOPICLONE
     Indication: Product used for unknown indication
     Dosage: 7.5 MG
     Route: 048
  18. ACETAMINOPHEN [Concomitant]
     Active Substance: ACETAMINOPHEN
     Indication: Product used for unknown indication
     Dosage: UNK, WHEN NECESSARY
     Route: 048
  19. THYMOGLOBULINE [Concomitant]
     Active Substance: LAPINE T-LYMPHOCYTE IMMUNE GLOBULIN
     Indication: Prophylaxis
     Dosage: 2 MG
     Route: 065
     Dates: start: 20210727
  20. THYMOGLOBULINE [Concomitant]
     Active Substance: LAPINE T-LYMPHOCYTE IMMUNE GLOBULIN
     Dosage: 2.5 MG
     Route: 065
     Dates: start: 20210728
  21. NEFOPAM [Concomitant]
     Active Substance: NEFOPAM
     Indication: Product used for unknown indication
     Dosage: UNK, WHEN NECESSARY
     Route: 048
  22. CYCLOSPORINE [Concomitant]
     Active Substance: CYCLOSPORINE
     Indication: Graft versus host disease
     Dosage: 150 MG
     Route: 065
     Dates: start: 20210831
  23. CYCLOSPORINE [Concomitant]
     Active Substance: CYCLOSPORINE
     Dosage: 400 MG, QD
     Route: 065
     Dates: start: 20210914
  24. ATRIANCE [Concomitant]
     Active Substance: NELARABINE
     Indication: Product used for unknown indication
     Dosage: UNK
     Route: 065
  25. VALACYCLOVIR HYDROCHLORIDE [Concomitant]
     Active Substance: VALACYCLOVIR HYDROCHLORIDE
     Indication: Infection prophylaxis
     Dosage: 500 MG
     Route: 065
  26. ATOVAQUONE [Concomitant]
     Active Substance: ATOVAQUONE
     Indication: Infection prophylaxis
     Dosage: 750 MG DRINKABALE IN MORNING AND EVENING
     Route: 065
  27. PENICILLIN G [Concomitant]
     Active Substance: PENICILLIN G
     Indication: Infection prophylaxis
     Dosage: 1 TABLET IN THE MORNING AND EVENING
     Route: 065
  28. URSODIOL [Concomitant]
     Active Substance: URSODIOL
     Indication: Immunosuppressant drug therapy
     Dosage: 250 MG: 1 TABLET AT LUNCH AND IN THE EVENING
     Route: 065

REACTIONS (4)
  - Pneumocystis jirovecii pneumonia [Recovered/Resolved]
  - Anxiety [Unknown]
  - Hyperthermia [Recovered/Resolved with Sequelae]
  - Epstein-Barr virus infection reactivation [Recovered/Resolved with Sequelae]

NARRATIVE: CASE EVENT DATE: 20210620
